FAERS Safety Report 7945288-5 (Version None)
Quarter: 2011Q4

REPORT INFORMATION
  Report Type: 
  Country: None (occurrence: None)
  Receive Date: 20111129
  Receipt Date: 20101201
  Transmission Date: 20120403
  Serious: No
  Sender: FDA-Public Use
  Company Number: US-GLAXOSMITHKLINE-A0897222A

PATIENT
  Age: 57 Year
  Sex: Female

DRUGS (8)
  1. CITALOPRAM [Suspect]
  2. VITAMIN B-12 [Concomitant]
  3. FOLIC ACID [Concomitant]
  4. B6 [Concomitant]
  5. RITALIN [Concomitant]
  6. VITAMIN B COMPLEX CAP [Concomitant]
  7. WELLBUTRIN SR [Suspect]
     Indication: DEPRESSION
     Dosage: 200MG TWICE PER DAY
     Route: 048
     Dates: start: 20000101
  8. CELEXA [Concomitant]

REACTIONS (2)
  - DRUG INEFFECTIVE [None]
  - HYPERSOMNIA [None]
